FAERS Safety Report 24705402 (Version 1)
Quarter: 2024Q4

REPORT INFORMATION
  Report Type: Spontaneous
  Country: US (occurrence: None)
  Receive Date: 20241205
  Receipt Date: 20241205
  Transmission Date: 20250115
  Serious: Yes (Death)
  Sender: Public
  Company Number: None

PATIENT
  Age: 66 Year
  Sex: Female

DRUGS (16)
  1. CORTICOTROPIN [Suspect]
     Active Substance: CORTICOTROPIN
     Indication: Focal segmental glomerulosclerosis
     Dosage: 400MG QD INJECTABLE
     Dates: start: 20230823, end: 20240126
  2. GLIPIZIDE [Concomitant]
     Active Substance: GLIPIZIDE
  3. INSULIN LISPRO [Concomitant]
     Active Substance: INSULIN LISPRO
  4. MIRTAZAPINE [Concomitant]
     Active Substance: MIRTAZAPINE
  5. METOLAZONE [Concomitant]
     Active Substance: METOLAZONE
  6. VITAMIN D2 [Concomitant]
     Active Substance: ERGOCALCIFEROL
  7. AMLODIPINE [Concomitant]
     Active Substance: AMLODIPINE BESYLATE
  8. MYCOPHENOLIC ACID [Concomitant]
     Active Substance: MYCOPHENOLIC ACID
  9. PREDNISONE [Concomitant]
     Active Substance: PREDNISONE
  10. FUROSEMIDE [Concomitant]
     Active Substance: FUROSEMIDE
  11. TACROLIMUS [Concomitant]
     Active Substance: TACROLIMUS
  12. CALCITRIOL [Concomitant]
     Active Substance: CALCITRIOL
  13. METOPROLOL [Concomitant]
     Active Substance: METOPROLOL
  14. JARDIANCE [Concomitant]
     Active Substance: EMPAGLIFLOZIN
  15. APIXABAN [Concomitant]
     Active Substance: APIXABAN
  16. LATANOPROST OPHT DROP [Concomitant]

REACTIONS (5)
  - Sepsis [None]
  - Multi-organ disorder [None]
  - Renal transplant failure [None]
  - Focal segmental glomerulosclerosis [None]
  - Disease recurrence [None]

NARRATIVE: CASE EVENT DATE: 20240110
